FAERS Safety Report 23842221 (Version 1)
Quarter: 2024Q2

REPORT INFORMATION
  Report Type: Spontaneous
  Country: US (occurrence: US)
  Receive Date: 20240510
  Receipt Date: 20240510
  Transmission Date: 20240715
  Serious: No
  Sender: FDA-Public Use
  Company Number: US-MYLANLABS-2024M1040331

PATIENT

DRUGS (1)
  1. LEVOTHYROXINE SODIUM [Suspect]
     Active Substance: LEVOTHYROXINE SODIUM
     Indication: Product used for unknown indication
     Dosage: UNK
     Route: 065

REACTIONS (15)
  - Vision blurred [Unknown]
  - Chest discomfort [Unknown]
  - Oxygen saturation decreased [Unknown]
  - Erythema [Unknown]
  - Gait disturbance [Unknown]
  - Swelling face [Unknown]
  - Speech disorder [Unknown]
  - Anxiety [Unknown]
  - Flushing [Unknown]
  - Palpitations [Unknown]
  - Heart rate increased [Unknown]
  - Abdominal pain upper [Unknown]
  - Tachycardia [Unknown]
  - Drug intolerance [Unknown]
  - Product substitution issue [Unknown]
